FAERS Safety Report 4557938-4 (Version None)
Quarter: 2005Q1

REPORT INFORMATION
  Report Type: 
  Country: None (occurrence: None)
  Receive Date: 20050121
  Receipt Date: 20040218
  Transmission Date: 20050727
  Serious: No
  Sender: FDA-Public Use
  Company Number: US-BRISTOL-MYERS SQUIBB COMPANY-12510301

PATIENT
  Age: 9 Year
  Sex: Male

DRUGS (1)
  1. SERZONE [Suspect]

REACTIONS (2)
  - INTENTIONAL SELF-INJURY [None]
  - MEDICATION ERROR [None]
